FAERS Safety Report 12717792 (Version 1)
Quarter: 2020Q3

REPORT INFORMATION
  Report Type: Report from Study
  Country: JP (occurrence: JP)
  Receive Date: 20160906
  Receipt Date: 20160906
  Transmission Date: 20201105
  Serious: Yes (Hospitalization)
  Sender: FDA-Public Use
  Company Number: JP-PFIZER INC-2016400169

PATIENT
  Age: 38 Year
  Sex: Male
  Weight: 60.1 kg

DRUGS (10)
  1. SENNOSIDE [Concomitant]
     Active Substance: SENNOSIDES
     Indication: CONSTIPATION
     Dosage: 24.0UG AS REQUIRED
     Route: 048
     Dates: start: 20160609
  2. PACLITAXEL. [Suspect]
     Active Substance: PACLITAXEL
     Route: 065
     Dates: start: 20160725
  3. RAMUCIRUMAB [Suspect]
     Active Substance: RAMUCIRUMAB
     Route: 065
     Dates: start: 20160725
  4. TREMELIMUMAB. [Suspect]
     Active Substance: TREMELIMUMAB
     Indication: OESOPHAGEAL ADENOCARCINOMA
     Dosage: 1 MG/KG, ONCE FOR EVERY FOUR WEEKS
     Route: 042
     Dates: start: 20160602
  5. LOXOPROFEN [Concomitant]
     Active Substance: LOXOPROFEN
     Indication: BACK PAIN
     Dosage: 60.0MG AS REQUIRED
     Route: 048
     Dates: start: 20160709
  6. ACOFIDE [Concomitant]
     Active Substance: ACOTIAMIDE HYDROCHLORIDE
     Indication: GASTRIC STENOSIS
     Route: 048
     Dates: start: 20160523
  7. LANSOPRAZOLE OD [Concomitant]
     Active Substance: LANSOPRAZOLE
     Indication: GASTRIC ULCER
     Route: 048
     Dates: start: 20160523
  8. FERROMIA [Concomitant]
     Active Substance: SODIUM FERROUS CITRATE
     Indication: ANAEMIA
     Route: 048
     Dates: start: 20150825
  9. MEDI4736 [Suspect]
     Active Substance: DURVALUMAB
     Indication: OESOPHAGEAL ADENOCARCINOMA
     Dosage: 10 MG/KG, ONCE FOR EVERY FOUR WEEKS
     Route: 042
     Dates: start: 20160602
  10. MAGLAX [Concomitant]
     Active Substance: MAGNESIUM OXIDE
     Indication: CONSTIPATION
     Dosage: 250.0MG AS REQUIRED
     Route: 048
     Dates: start: 20160630

REACTIONS (1)
  - Gastric perforation [Not Recovered/Not Resolved]

NARRATIVE: CASE EVENT DATE: 20160808
